FAERS Safety Report 22217844 (Version 1)
Quarter: 2023Q2

REPORT INFORMATION
  Report Type: Spontaneous
  Country: DE (occurrence: DE)
  Receive Date: 20230417
  Receipt Date: 20230417
  Transmission Date: 20230721
  Serious: Yes (Other)
  Sender: FDA-Public Use
  Company Number: None

PATIENT

DRUGS (17)
  1. TAFASITAMAB [Suspect]
     Active Substance: TAFASITAMAB
     Indication: Diffuse large B-cell lymphoma
     Dosage: IN FOURTH LINE THE PATIENT WAS TREATED WITH TAFASITAMAB AND LENALIDOMIDE, RESPONSE: NO RESPONSE/STAB
     Dates: start: 20230101, end: 20230201
  2. CYCLOPHOSPHAMIDE [Suspect]
     Active Substance: CYCLOPHOSPHAMIDE
     Indication: Diffuse large B-cell lymphoma
     Dosage: IN FIRST LINE THE PATIENT WAS TREATED WITH RITUXIMAB AND CHOP, RESPONSE: PROGRESSIVE DISEASE.
     Dates: start: 20220201, end: 20220501
  3. DOXORUBICIN [Suspect]
     Active Substance: DOXORUBICIN
     Indication: Diffuse large B-cell lymphoma
     Dosage: IN FIRST LINE THE PATIENT WAS TREATED WITH RITUXIMAB AND CHOP, RESPONSE: PROGRESSIVE DISEASE.
     Route: 065
     Dates: start: 20220201, end: 20220501
  4. VINCRISTINE [Suspect]
     Active Substance: VINCRISTINE
     Indication: Diffuse large B-cell lymphoma
     Dosage: IN FIRST LINE THE PATIENT WAS TREATED WITH RITUXIMAB AND CHOP, RESPONSE: PROGRESSIVE DISEASE
     Route: 065
     Dates: start: 20220201, end: 20220501
  5. RITUXIMAB [Suspect]
     Active Substance: RITUXIMAB
     Indication: Diffuse large B-cell lymphoma
     Dosage: IN SECOND LINE THE PATIENT WAS TREATED RITUXIMAB WITH POLATUZUMAB AND BENDAMUSTINE, RESPONSE: DISEAS
     Route: 065
     Dates: start: 20220501, end: 20220601
  6. RITUXIMAB [Suspect]
     Active Substance: RITUXIMAB
     Dosage: IN FIRST LINE THE PATIENT WAS TREATED WITH RITUXIMAB AND CHOP, RESPONSE: PROGRESSIVE DISEASE.
     Route: 065
     Dates: start: 20220201, end: 20220501
  7. RITUXIMAB [Suspect]
     Active Substance: RITUXIMAB
     Dosage: THE FIRST ADMINISTRATION WAS WITH RITUXIMAB BIOSIMILAR, AND FOR THE SUBSEQUENT ADMINISTRATIONS MABTH
     Route: 058
     Dates: start: 20220501
  8. RITUXIMAB [Suspect]
     Active Substance: RITUXIMAB
     Dosage: THE FIRST ADMINISTRATION WAS WITH RITUXIMAB BIOSIMILAR, AND FOR THE SUBSEQUENT ADMINISTRATIONS MABTH
     Route: 058
     Dates: start: 20220601
  9. LENALIDOMIDE [Suspect]
     Active Substance: LENALIDOMIDE
     Indication: Diffuse large B-cell lymphoma
     Dosage: IN FOURTH LINE THE PATIENT WAS TREATED WITH TAFASIATAMAB AND LENALIDOMIDE RESPONSE: NO RESPONSE/STAB
     Route: 065
     Dates: start: 20230101, end: 20230201
  10. BENDAMUSTINE [Suspect]
     Active Substance: BENDAMUSTINE
     Indication: Diffuse large B-cell lymphoma
     Dosage: IN SECOND LINE THE PATIENT WAS TREATED RITUXIMAB WITH POLATUZUMAB AND BENDAMUSTINE, RESPONSE: DISEAS
     Route: 065
     Dates: start: 20220501, end: 20220601
  11. OXALIPLATIN [Suspect]
     Active Substance: OXALIPLATIN
     Indication: Diffuse large B-cell lymphoma
     Dosage: IN FIFTH LINE THE PATIENT WAS TREATED WITH GEMOX (GEMCITABINE OXALIPLATIN), RESPONSE: NO RESPONSE/ST
     Route: 065
     Dates: start: 20230201, end: 20230308
  12. POLIVY [Suspect]
     Active Substance: POLATUZUMAB VEDOTIN-PIIQ
     Indication: Diffuse large B-cell lymphoma
     Dosage: IN SECOND LINE THE PATIENT WAS TREATED RITUXIMAB WITH POLATUZUMAB AND BENDAMUSTINE, RESPONSE: DISEAS
     Route: 065
     Dates: start: 20220501, end: 20220601
  13. PREDNISONE [Suspect]
     Active Substance: PREDNISONE
     Indication: Diffuse large B-cell lymphoma
     Dosage: IN FIRST LINE THE PATIENT WAS TREATED WITH RITUXIMAB AND CHOP, RESPONSE: PROGRESSIVE DISEASE
     Route: 065
     Dates: start: 20220201, end: 20220501
  14. GEMCITABINE [Suspect]
     Active Substance: GEMCITABINE
     Indication: Diffuse large B-cell lymphoma
     Dosage: IN FIFTH LINE THE PATIENT WAS TREATED WITH GEMOX (GEMCITABINE OXALIPLATIN), RESPONSE: NO RESPONSE/ST
     Route: 065
     Dates: start: 20230201, end: 20230308
  15. HYALURONIDASE (HUMAN RECOMBINANT) [Suspect]
     Active Substance: HYALURONIDASE (HUMAN RECOMBINANT)
     Indication: Diffuse large B-cell lymphoma
     Dosage: THE FIRST ADMINISTRATION WAS WITH RITUXIMAB BIOSIMILAR, AND FOR THE SUBSEQUENT ADMINISTRATIONS MABTH
     Route: 058
     Dates: start: 20220501
  16. HYALURONIDASE (HUMAN RECOMBINANT) [Suspect]
     Active Substance: HYALURONIDASE (HUMAN RECOMBINANT)
     Dosage: THE FIRST ADMINISTRATION WAS WITH RITUXIMAB BIOSIMILAR, AND FOR THE SUBSEQUENT ADMINISTRATIONS MABTH
     Route: 058
     Dates: start: 20220601
  17. HYALURONIDASE (HUMAN RECOMBINANT) [Suspect]
     Active Substance: HYALURONIDASE (HUMAN RECOMBINANT)
     Dosage: THE FIRST ADMINISTRATION WAS WITH RITUXIMAB BIOSIMILAR, AND FOR THE SUBSEQUENT ADMINISTRATIONS MABTH
     Route: 065

REACTIONS (1)
  - Lymphoma [Unknown]
